FAERS Safety Report 6780170-0 (Version None)
Quarter: 2010Q2

REPORT INFORMATION
  Report Type: 
  Country: None (occurrence: None)
  Receive Date: 20100618
  Receipt Date: 20100615
  Transmission Date: 20101027
  Serious: Yes (Life-Threatening)
  Sender: FDA-Public Use
  Company Number: TR-ELI_LILLY_AND_COMPANY-TR201006004533

PATIENT
  Sex: Female

DRUGS (5)
  1. HUMULIN R [Suspect]
     Indication: GESTATIONAL DIABETES
     Dosage: 10 U, EACH MORNING
     Route: 064
     Dates: start: 20100301, end: 20100605
  2. HUMULIN R [Suspect]
     Dosage: 9 U, DAILY (1/D)
     Route: 064
     Dates: start: 20100301, end: 20100605
  3. HUMULIN R [Suspect]
     Dosage: 9 U, EACH EVENING
     Route: 064
     Dates: start: 20100301, end: 20100605
  4. HUMULIN N [Suspect]
     Indication: GESTATIONAL DIABETES
     Dosage: 12 U, EACH EVENING
     Route: 064
     Dates: start: 20100301, end: 20100605
  5. IRON [Concomitant]
     Indication: IRON DEFICIENCY
     Dosage: 1 D/F, DAILY (1/D)
     Route: 064
     Dates: start: 20091101, end: 20100601

REACTIONS (2)
  - DRUG EXPOSURE DURING PREGNANCY [None]
  - FOETAL DISTRESS SYNDROME [None]
